FAERS Safety Report 5746314-4 (Version None)
Quarter: 2008Q2

REPORT INFORMATION
  Report Type: 
  Country: None (occurrence: None)
  Receive Date: 20080522
  Receipt Date: 20080515
  Transmission Date: 20081010
  Serious: Yes (Other)
  Sender: FDA-Public Use
  Company Number: US-ROCHE-564798

PATIENT

DRUGS (1)
  1. NAPROXEN [Suspect]
     Route: 065

REACTIONS (1)
  - DIVERTICULITIS [None]
